FAERS Safety Report 20264147 (Version 1)
Quarter: 2021Q4

REPORT INFORMATION
  Report Type: Spontaneous
  Country: US (occurrence: None)
  Receive Date: 20211230
  Receipt Date: 20211230
  Transmission Date: 20220304
  Serious: Yes (Hospitalization, Disabling)
  Sender: FDA-Public Use
  Company Number: None

PATIENT
  Age: 41 Year
  Sex: Female
  Weight: 81 kg

DRUGS (4)
  1. SEVOFLURANE [Suspect]
     Active Substance: SEVOFLURANE
  2. ISOFLURANE [Suspect]
     Active Substance: ISOFLURANE
  3. LEVOTHYROXINE [Concomitant]
     Active Substance: LEVOTHYROXINE
  4. KEPPRA [Concomitant]
     Active Substance: LEVETIRACETAM

REACTIONS (6)
  - Nausea [None]
  - Migraine [None]
  - Lethargy [None]
  - Seizure [None]
  - Occupational problem environmental [None]
  - Accidental exposure to product [None]

NARRATIVE: CASE EVENT DATE: 20211118
